FAERS Safety Report 18547537 (Version 1)
Quarter: 2020Q4

REPORT INFORMATION
  Report Type: Spontaneous
  Country: AU (occurrence: AU)
  Receive Date: 20201125
  Receipt Date: 20201125
  Transmission Date: 20210114
  Serious: Yes (Hospitalization, Other)
  Sender: FDA-Public Use
  Company Number: AU-MYLANLABS-2020M1096089

PATIENT
  Age: 45 Year
  Sex: Male
  Weight: 84 kg

DRUGS (10)
  1. FLUPENTHIXOL                       /00109701/ [Concomitant]
     Active Substance: FLUPENTIXOL
     Dosage: 200 MILLIGRAM
     Route: 030
     Dates: end: 20201109
  2. BENZTROPINE                        /00012901/ [Concomitant]
     Active Substance: BENZTROPINE
     Dosage: 0.5 MILLIGRAM, AM (BENZTROPINE 0.5MG PO MANE)
  3. CLONAZEPAM. [Concomitant]
     Active Substance: CLONAZEPAM
     Dosage: 1.5 MILLIGRAM, BID (1.5MG PO BD)
  4. SODIUM VALPROATE [Concomitant]
     Active Substance: VALPROATE SODIUM
     Indication: EPILEPSY
     Dosage: 700 MILLIGRAM, BID (700MG PO BD)
  5. CLOZARIL [Suspect]
     Active Substance: CLOZAPINE
     Dosage: 12.5MG PO MANE
     Route: 048
     Dates: start: 20201119
  6. LORAZEPAM. [Concomitant]
     Active Substance: LORAZEPAM
     Dosage: 2MG PO/IM 2HRLY PRN (MAX DOSE 12MG/24HRS)
     Route: 030
  7. OLANZAPINE. [Concomitant]
     Active Substance: OLANZAPINE
     Dosage: 20 MILLIGRAM, PM (20MG PO NOCTE (WEANING DOSE))
  8. PROMETHAZINE [Concomitant]
     Active Substance: PROMETHAZINE HYDROCHLORIDE
     Dosage: 50 MILLIGRAM, PRN (50MG PO NOCTE PRN)
  9. CLOZARIL [Suspect]
     Active Substance: CLOZAPINE
     Indication: SCHIZOPHRENIA
     Dosage: 950 MILLIGRAM, QD
     Route: 048
     Dates: start: 20020121, end: 2004
  10. CLOZARIL [Suspect]
     Active Substance: CLOZAPINE
     Dosage: 200 MILLIGRAM
     Dates: start: 2004, end: 20040513

REACTIONS (8)
  - Myocarditis [Unknown]
  - Blood osmolarity decreased [Unknown]
  - Blood triglycerides increased [Unknown]
  - Hospitalisation [Unknown]
  - Blood sodium decreased [Not Recovered/Not Resolved]
  - Haemoglobin decreased [Unknown]
  - Haematocrit decreased [Unknown]
  - Red blood cell count decreased [Not Recovered/Not Resolved]

NARRATIVE: CASE EVENT DATE: 2004
